FAERS Safety Report 8611023-0 (Version None)
Quarter: 2012Q3

REPORT INFORMATION
  Report Type: 
  Country: None (occurrence: None)
  Receive Date: 20120822
  Receipt Date: 20120815
  Transmission Date: 20120928
  Serious: Yes (Other)
  Sender: FDA-Public Use
  Company Number: US-PFIZER INC-2012199561

PATIENT
  Age: 9 Year
  Sex: Male

DRUGS (2)
  1. CHILDRENS CHEWABLE VITAMINS [Concomitant]
  2. GENOTROPIN [Suspect]
     Dosage: UNK

REACTIONS (3)
  - BACK PAIN [None]
  - TOE WALKING [None]
  - ARTHROPATHY [None]
